FAERS Safety Report 14351628 (Version 1)
Quarter: 2018Q1

REPORT INFORMATION
  Report Type: Spontaneous
  Country: CN (occurrence: CN)
  Receive Date: 20180104
  Receipt Date: 20180104
  Transmission Date: 20180509
  Serious: Yes (Hospitalization, Other)
  Sender: FDA-Public Use
  Company Number: CN-FRESENIUS KABI-FK201800161

PATIENT
  Age: 18 Year
  Sex: Female

DRUGS (11)
  1. TAZOCIN [Suspect]
     Active Substance: PIPERACILLIN SODIUM\TAZOBACTAM SODIUM
     Indication: ANTI-INFECTIVE THERAPY
  2. TEICOPLANIN [Suspect]
     Active Substance: TEICOPLANIN
     Indication: ANTI-INFECTIVE THERAPY
  3. IMIPENEM [Suspect]
     Active Substance: IMIPENEM
     Indication: ANTI-INFECTIVE THERAPY
  4. GAMMA IMMUNOGLOBULIN [Suspect]
     Active Substance: HUMAN IMMUNOGLOBULIN G
     Indication: PROPHYLAXIS
  5. VOLUVEN [Suspect]
     Active Substance: HYDROXYETHYL STARCH 130/0.4
     Indication: HYPOPROTEINAEMIA
  6. THYMALFASIN [Suspect]
     Active Substance: THYMALFASIN
     Indication: PROPHYLAXIS
  7. IRON SUCROSE [Suspect]
     Active Substance: IRON SUCROSE
     Indication: SUPPLEMENTATION THERAPY
  8. ALBUMIN [Suspect]
     Active Substance: ALBUMIN HUMAN
     Indication: HYPOPROTEINAEMIA
  9. MUCOSOLVAN [Suspect]
     Active Substance: AMBROXOL HYDROCHLORIDE
     Indication: DENTAL DISORDER PROPHYLAXIS
  10. NYSTATIN. [Suspect]
     Active Substance: NYSTATIN
     Indication: DENTAL DISORDER PROPHYLAXIS
  11. HIBITANE [Suspect]
     Active Substance: CHLORHEXIDINE
     Indication: DENTAL DISORDER PROPHYLAXIS

REACTIONS (6)
  - Haematochezia [Recovered/Resolved]
  - Prothrombin time prolonged [Recovered/Resolved]
  - International normalised ratio increased [Recovered/Resolved]
  - Coagulopathy [Recovered/Resolved]
  - Blood fibrinogen increased [Recovered/Resolved]
  - Transfusion [Recovered/Resolved]

NARRATIVE: CASE EVENT DATE: 20150311
